FAERS Safety Report 20125833 (Version 2)
Quarter: 2021Q4

REPORT INFORMATION
  Report Type: Spontaneous
  Country: US (occurrence: US)
  Receive Date: 20211129
  Receipt Date: 20211229
  Transmission Date: 20220304
  Serious: No
  Sender: FDA-Public Use
  Company Number: US-PFIZER INC-202101494166

PATIENT
  Age: 9 Month
  Sex: Male

DRUGS (1)
  1. GENOTROPIN [Suspect]
     Active Substance: SOMATROPIN
     Dosage: 0.8 MG
     Dates: start: 202108

REACTIONS (2)
  - Drug dose omission by device [Unknown]
  - Device issue [Unknown]
